FAERS Safety Report 17014800 (Version 5)
Quarter: 2021Q4

REPORT INFORMATION
  Report Type: Report from Study
  Country: JP (occurrence: JP)
  Receive Date: 20191111
  Receipt Date: 20211111
  Transmission Date: 20220303
  Serious: Yes (Other)
  Sender: FDA-Public Use
  Company Number: JP-VIIV HEALTHCARE ULC-JP2016JPN114936

PATIENT
  Age: 43 Year
  Sex: Male

DRUGS (12)
  1. DOLUTEGRAVIR [Suspect]
     Active Substance: DOLUTEGRAVIR
     Indication: HIV infection
     Dosage: 50 MG, 1D
     Route: 048
     Dates: start: 20141026, end: 20190819
  2. NORVIR [Suspect]
     Active Substance: RITONAVIR
     Indication: HIV infection
     Dosage: 100 MG, UNK
     Route: 048
     Dates: start: 20110608, end: 20141025
  3. DARUNAVIR [Suspect]
     Active Substance: DARUNAVIR
     Indication: HIV infection
     Dosage: 800 MG, QD
     Route: 048
     Dates: start: 20120509, end: 20141025
  4. MINOCYCLINE HYDROCHLORIDE [Suspect]
     Active Substance: MINOCYCLINE HYDROCHLORIDE
     Indication: Folliculitis
     Dosage: 50 MG, BID
     Route: 048
     Dates: start: 20150424, end: 20150828
  5. MINOCYCLINE HYDROCHLORIDE [Suspect]
     Active Substance: MINOCYCLINE HYDROCHLORIDE
     Dosage: 50 MG, BID
     Route: 048
     Dates: start: 20160311, end: 20170928
  6. INDOMETHACIN [Suspect]
     Active Substance: INDOMETHACIN
     Indication: Folliculitis
     Dosage: 25 MG, BID
     Route: 048
     Dates: start: 20150424, end: 20150828
  7. INDOMETHACIN [Suspect]
     Active Substance: INDOMETHACIN
     Dosage: 50 MG, TID
     Route: 048
     Dates: start: 20160311, end: 201704
  8. TRUVADA [Concomitant]
     Active Substance: EMTRICITABINE\TENOFOVIR DISOPROXIL FUMARATE
     Indication: HIV infection
     Dosage: 1 DF, 1D
     Dates: start: 20050914, end: 20170531
  9. DESCOVY [Concomitant]
     Active Substance: EMTRICITABINE\TENOFOVIR ALAFENAMIDE FUMARATE
     Indication: HIV infection
     Dosage: 1 DF, 1D
     Dates: start: 20170601, end: 20190819
  10. BIKTARVY [Concomitant]
     Active Substance: BICTEGRAVIR SODIUM\EMTRICITABINE\TENOFOVIR ALAFENAMIDE FUMARATE
     Indication: HIV infection
     Dosage: 1 DF, 1D
     Dates: start: 20190820
  11. POLARAMINE [Concomitant]
     Active Substance: DEXCHLORPHENIRAMINE MALEATE
     Dosage: UNK
     Dates: start: 20200401
  12. BILASTINE [Concomitant]
     Active Substance: BILASTINE
     Dosage: UNK
     Dates: start: 20200401, end: 20210301

REACTIONS (6)
  - Hypertriglyceridaemia [Recovering/Resolving]
  - Hepatic function abnormal [Recovering/Resolving]
  - Dermal cyst [Recovering/Resolving]
  - Folliculitis [Recovered/Resolved]
  - Folliculitis [Recovered/Resolved]
  - Amoebic dysentery [Recovering/Resolving]

NARRATIVE: CASE EVENT DATE: 20140912
